FAERS Safety Report 6680874-4 (Version None)
Quarter: 2010Q2

REPORT INFORMATION
  Report Type: 
  Country: None (occurrence: None)
  Receive Date: 20100414
  Receipt Date: 20100409
  Transmission Date: 20101027
  Serious: Yes (Other)
  Sender: FDA-Public Use
  Company Number: KR-BRISTOL-MYERS SQUIBB COMPANY-15031701

PATIENT
  Age: 32 Year
  Sex: Female

DRUGS (1)
  1. BARACLUDE [Suspect]
     Indication: HEPATITIS B
     Dosage: FORMULATION: TABLETS
     Route: 048
     Dates: start: 20091103

REACTIONS (2)
  - DEPRESSION [None]
  - MENTAL DISORDER [None]
